FAERS Safety Report 5479466-4 (Version None)
Quarter: 2007Q4

REPORT INFORMATION
  Report Type: 
  Country: None (occurrence: None)
  Receive Date: 20071008
  Receipt Date: 20070928
  Transmission Date: 20080405
  Serious: Yes (Hospitalization)
  Sender: FDA-Public Use
  Company Number: FR-ASTRAZENECA-2007SE04602

PATIENT
  Age: 25240 Day
  Sex: Female

DRUGS (5)
  1. KENZEN 4 MG [Suspect]
     Indication: HYPERTENSION
     Route: 048
     Dates: start: 20070601, end: 20070801
  2. CARDENSIEL [Suspect]
     Indication: HYPERTENSION
     Route: 048
     Dates: start: 20070601
  3. TAREG [Concomitant]
     Indication: HYPERTENSION
     Route: 065
     Dates: end: 20070701
  4. TAREG [Concomitant]
     Route: 065
     Dates: start: 20070806
  5. FUROSEMIDE [Concomitant]
     Indication: DRUG USE FOR UNKNOWN INDICATION
     Route: 065

REACTIONS (6)
  - ASTHENIA [None]
  - BLOOD BILIRUBIN INCREASED [None]
  - CHEST PAIN [None]
  - COOMBS POSITIVE HAEMOLYTIC ANAEMIA [None]
  - LYMPHADENOPATHY [None]
  - SENSE OF OPPRESSION [None]
